FAERS Safety Report 9554172 (Version 1)
Quarter: 2013Q3

REPORT INFORMATION
  Report Type: Spontaneous
  Country: BR (occurrence: BR)
  Receive Date: 20130925
  Receipt Date: 20130925
  Transmission Date: 20140515
  Serious: Yes (Hospitalization, Other)
  Sender: FDA-Public Use
  Company Number: BR-PFIZER INC-2013273474

PATIENT
  Age: 79 Year
  Sex: Male
  Weight: 76 kg

DRUGS (8)
  1. LIPITOR [Suspect]
     Indication: BLOOD CHOLESTEROL
     Dosage: 40 MG (ONE TABLET), ONCE DAILY
     Route: 048
     Dates: start: 201306
  2. APRESOLINA [Concomitant]
  3. EBIXA [Concomitant]
  4. DONEPEZIL [Concomitant]
  5. LOSARTAN [Concomitant]
  6. NORVASC [Concomitant]
  7. SELOZOK [Concomitant]
  8. SEROQUEL [Concomitant]

REACTIONS (1)
  - Cerebrovascular accident [Unknown]
